FAERS Safety Report 7645687-5 (Version None)
Quarter: 2011Q3

REPORT INFORMATION
  Report Type: 
  Country: None (occurrence: None)
  Receive Date: 20110729
  Receipt Date: 20110720
  Transmission Date: 20111222
  Serious: Yes (Other)
  Sender: FDA-Public Use
  Company Number: US-US-EMD SERONO, INC.-7071098

PATIENT
  Sex: Female
  Weight: 81 kg

DRUGS (5)
  1. IBUPROFEN [Suspect]
     Indication: PREMEDICATION
     Dates: start: 20060701
  2. BACLOFEN [Concomitant]
     Dates: start: 20060601
  3. THYROID REPLACEMENT [Concomitant]
  4. REBIF [Suspect]
     Indication: MULTIPLE SCLEROSIS
     Route: 058
     Dates: start: 20060713
  5. PREMPHASE (PREMARIN;CYCRIN 14/14) [Concomitant]

REACTIONS (6)
  - ALOPECIA [None]
  - ARTHRALGIA [None]
  - MENORRHAGIA [None]
  - THYROID FUNCTION TEST ABNORMAL [None]
  - INJECTION SITE PAIN [None]
  - INJECTION SITE ERYTHEMA [None]
